FAERS Safety Report 11723420 (Version 1)
Quarter: 2015Q4

REPORT INFORMATION
  Report Type: Spontaneous
  Country: US (occurrence: None)
  Receive Date: 20151110
  Receipt Date: 20151110
  Transmission Date: 20160304
  Serious: Yes (Hospitalization, Disabling)
  Sender: FDA-Public Use
  Company Number: None

PATIENT
  Age: 48 Year
  Sex: Female
  Weight: 61.69 kg

DRUGS (18)
  1. PREMARIN [Concomitant]
     Active Substance: ESTROGENS, CONJUGATED
  2. MAGNESIUM [Concomitant]
     Active Substance: MAGNESIUM
  3. LECITHIN [Concomitant]
     Active Substance: LECITHIN
  4. CUMIN. [Concomitant]
     Active Substance: CUMIN
  5. PROTEIN SHAKES [Concomitant]
  6. CALCIUM [Concomitant]
     Active Substance: CALCIUM
  7. VITAMIN C [Concomitant]
     Active Substance: ASCORBIC ACID
  8. VITAMIN D3 [Concomitant]
     Active Substance: CHOLECALCIFEROL
  9. LEVAQUIN [Suspect]
     Active Substance: LEVOFLOXACIN
     Indication: URINARY TRACT INFECTION
  10. VITAMIN D3 [Concomitant]
     Active Substance: CHOLECALCIFEROL
  11. AMITRIPTYLINE [Concomitant]
     Active Substance: AMITRIPTYLINE
  12. VITAMINS [Concomitant]
     Active Substance: VITAMINS
  13. VITAMIN E [Concomitant]
     Active Substance: .ALPHA.-TOCOPHEROL
  14. VITAMIN B [Concomitant]
     Active Substance: VITAMIN B
  15. LEVAQUIN [Suspect]
     Active Substance: LEVOFLOXACIN
     Indication: COLITIS
  16. CIPRO [Suspect]
     Active Substance: CIPROFLOXACIN HYDROCHLORIDE
  17. OMEPROZOLE [Concomitant]
     Active Substance: OMEPRAZOLE
  18. HERBS [Concomitant]
     Active Substance: HERBALS

REACTIONS (13)
  - Colitis [None]
  - Product quality issue [None]
  - Fatigue [None]
  - Arthralgia [None]
  - Burning sensation [None]
  - Hypoaesthesia [None]
  - Tinnitus [None]
  - Decreased activity [None]
  - Gait disturbance [None]
  - Impaired work ability [None]
  - Muscle tightness [None]
  - Paraesthesia [None]
  - Pain in extremity [None]
